FAERS Safety Report 5284678-9 (Version None)
Quarter: 2007Q2

REPORT INFORMATION
  Report Type: 
  Country: None (occurrence: None)
  Receive Date: 20070403
  Receipt Date: 20070323
  Transmission Date: 20071010
  Serious: Yes (Hospitalization)
  Sender: FDA-Public Use
  Company Number: CH-ROCHE-489572

PATIENT
  Age: 69 Year
  Sex: Female

DRUGS (8)
  1. ROCEPHIN [Suspect]
     Indication: DRUG USE FOR UNKNOWN INDICATION
     Dosage: FORM REPORTED AS AMPOULES, INTRAVENOUS.
     Route: 042
     Dates: start: 20070117, end: 20070223
  2. PREDNISONE [Concomitant]
     Dosage: IN THE MORNING.
     Route: 048
  3. EUTHYROX [Concomitant]
     Dosage: FROM MONDAY TO FRIDAY IN THE MORNING.
     Route: 048
  4. ELTROXIN [Concomitant]
     Dosage: ON SATURDAY AND SUNDAY MORNING.
     Route: 048
  5. BLOPRESS PLUS [Concomitant]
     Dosage: IN THE MORNING.
     Route: 048
  6. ESIDRIX [Concomitant]
     Dosage: IN THE MORNING.
     Route: 048
  7. FOSAMAX [Concomitant]
     Dosage: ON THURSDAY MORNING.
     Route: 048
  8. CALCIMAGON-D3 [Concomitant]
     Dosage: IN THE EVENING.
     Route: 048

REACTIONS (3)
  - CHOLELITHIASIS [None]
  - LIVER FUNCTION TEST ABNORMAL [None]
  - PANCREATITIS [None]
